FAERS Safety Report 21254788 (Version 1)
Quarter: 2022Q3

REPORT INFORMATION
  Report Type: Spontaneous
  Country: US (occurrence: None)
  Receive Date: 20220824
  Receipt Date: 20220824
  Transmission Date: 20221027
  Serious: Yes (Disabling)
  Sender: FDA-Public Use
  Company Number: None

PATIENT
  Age: 24 Year
  Sex: Female
  Weight: 43.65 kg

DRUGS (3)
  1. DEXTROAMPHET SACCHARAT, AMPHET ASPARTATE, DEXTROAMPHET SULFATE AND AMP [Suspect]
     Active Substance: AMPHETAMINE ASPARTATE\AMPHETAMINE SULFATE\DEXTROAMPHETAMINE SACCHARATE\DEXTROAMPHETAMINE SULFATE
     Indication: Attention deficit hyperactivity disorder
     Dosage: OTHER QUANTITY : 45 TABLET(S);?FREQUENCY : DAILY;?
     Route: 048
     Dates: start: 20220714, end: 20220823
  2. BIOTIN [Concomitant]
     Active Substance: BIOTIN
  3. amino acid protein powder [Concomitant]

REACTIONS (8)
  - Rash [None]
  - Manufacturing issue [None]
  - Panic attack [None]
  - Loss of consciousness [None]
  - Mood swings [None]
  - Anger [None]
  - Suicidal ideation [None]
  - Disturbance in attention [None]

NARRATIVE: CASE EVENT DATE: 20220714
